FAERS Safety Report 25030929 (Version 1)
Quarter: 2025Q1

REPORT INFORMATION
  Report Type: Other
  Country: CA (occurrence: CA)
  Receive Date: 20250303
  Receipt Date: 20250303
  Transmission Date: 20250409
  Serious: Yes (Other)
  Sender: PFIZER
  Company Number: CA-PFIZER INC-202500046404

PATIENT
  Age: 52 Year
  Sex: Female

DRUGS (11)
  1. TRASTUZUMAB [Suspect]
     Active Substance: TRASTUZUMAB
     Indication: Breast cancer
  2. TRASTUZUMAB [Suspect]
     Active Substance: TRASTUZUMAB
  3. TRASTUZUMAB [Suspect]
     Active Substance: TRASTUZUMAB
  4. DOXORUBICIN HYDROCHLORIDE [Suspect]
     Active Substance: DOXORUBICIN HYDROCHLORIDE
     Indication: Breast cancer
  5. PACLITAXEL [Suspect]
     Active Substance: PACLITAXEL
     Indication: Breast cancer
  6. ANASTROZOLE [Suspect]
     Active Substance: ANASTROZOLE
     Indication: Breast cancer
  7. CYCLOPHOSPHAMIDE [Suspect]
     Active Substance: CYCLOPHOSPHAMIDE
     Indication: Breast cancer
  8. DENOSUMAB [Suspect]
     Active Substance: DENOSUMAB
     Indication: Breast cancer
  9. DENOSUMAB [Suspect]
     Active Substance: DENOSUMAB
  10. DENOSUMAB [Suspect]
     Active Substance: DENOSUMAB
  11. TAMOXIFEN [Suspect]
     Active Substance: TAMOXIFEN
     Indication: Breast cancer

REACTIONS (2)
  - Foot fracture [Recovered/Resolved]
  - Hypophosphatasia [Recovered/Resolved]
